FAERS Safety Report 24004835 (Version 1)
Quarter: 2024Q2

REPORT INFORMATION
  Report Type: Report from Study
  Country: IT (occurrence: IT)
  Receive Date: 20240624
  Receipt Date: 20240624
  Transmission Date: 20240716
  Serious: Yes (Death, Life-Threatening, Other)
  Sender: FDA-Public Use
  Company Number: IT-MLMSERVICE-20240610-PI089806-00119-2

PATIENT
  Age: 31 Year
  Sex: Male

DRUGS (4)
  1. DIAZEPAM [Suspect]
     Active Substance: DIAZEPAM
     Indication: Product used for unknown indication
     Dosage: UNK
     Route: 065
  2. METHADONE [Suspect]
     Active Substance: METHADONE HYDROCHLORIDE
     Indication: Drug dependence
     Dosage: UNK
     Route: 065
  3. DULOXETINE [Concomitant]
     Active Substance: DULOXETINE
     Indication: Product used for unknown indication
     Dosage: UNK
     Route: 065
  4. FLUBROMAZEPAM [Suspect]
     Active Substance: FLUBROMAZEPAM

REACTIONS (16)
  - Brain compression [Fatal]
  - Brain oedema [Fatal]
  - Cardiac steatosis [Fatal]
  - Pulmonary oedema [Fatal]
  - Pulmonary alveolar haemorrhage [Fatal]
  - Respiratory depression [Fatal]
  - Hepatic steatosis [Fatal]
  - Hepatomegaly [Fatal]
  - Toxicity to various agents [Fatal]
  - Kidney congestion [Fatal]
  - Lung hyperinflation [Fatal]
  - Left ventricular dilatation [Fatal]
  - Myocardial fibrosis [Fatal]
  - Haemorrhage subcutaneous [Unknown]
  - Connective tissue disorder [Unknown]
  - Injection site haematoma [Unknown]
